FAERS Safety Report 4966569-3 (Version None)
Quarter: 2006Q2

REPORT INFORMATION
  Report Type: 
  Country: None (occurrence: None)
  Receive Date: 20060407
  Receipt Date: 20060330
  Transmission Date: 20061013
  Serious: Yes (Death)
  Sender: FDA-Public Use
  Company Number: US-JNJFOC-20060400359

PATIENT
  Sex: Male

DRUGS (11)
  1. FENTANYL [Suspect]
     Route: 062
  2. REMINYL [Concomitant]
     Indication: DEMENTIA
     Route: 048
  3. NAMENDA [Concomitant]
     Indication: DEMENTIA
     Route: 048
  4. TENORMIN [Concomitant]
     Indication: HYPERTENSION
     Route: 048
  5. HYTRIN [Concomitant]
     Route: 048
  6. ACIPHEX [Concomitant]
     Route: 048
  7. RISPERDAL [Concomitant]
     Indication: DEMENTIA
     Route: 048
  8. ZOCOR [Concomitant]
     Route: 048
  9. AMBIEN [Concomitant]
     Indication: SLEEP DISORDER
     Dosage: 0.5 MG ONE EVERY NIGHT
     Route: 048
  10. FLONASE [Concomitant]
     Indication: RESPIRATORY DISORDER
     Dosage: 50 UG, 2 PUFFS EVERY DAY
     Route: 045
  11. NITROGLYCERIN [Concomitant]
     Route: 062

REACTIONS (3)
  - CARDIAC FAILURE CONGESTIVE [None]
  - CONSTIPATION [None]
  - THYROID DISORDER [None]
